FAERS Safety Report 7892506-8 (Version None)
Quarter: 2011Q4

REPORT INFORMATION
  Report Type: 
  Country: None (occurrence: None)
  Receive Date: 20111102
  Receipt Date: 20111007
  Transmission Date: 20120403
  Serious: No
  Sender: FDA-Public Use
  Company Number: 2011SP044927

PATIENT
  Age: 27 Year
  Sex: Female

DRUGS (3)
  1. SAPHRIS [Suspect]
     Indication: MANIA
     Dosage: 5 MG;HS;SL
     Route: 060
     Dates: start: 20110919, end: 20110921
  2. KLONOPIN [Concomitant]
  3. COGENTIN [Concomitant]

REACTIONS (3)
  - PYREXIA [None]
  - OFF LABEL USE [None]
  - PRURITUS [None]
